FAERS Safety Report 25870479 (Version 1)
Quarter: 2025Q4

REPORT INFORMATION
  Report Type: Spontaneous
  Country: EU (occurrence: EU)
  Receive Date: 20251001
  Receipt Date: 20251001
  Transmission Date: 20260117
  Serious: Yes (Other)
  Sender: BRISTOL-MYERS SQUIBB COMPANY
  Company Number: EU-SANDOZ-SDZ2025NO070281

PATIENT
  Age: 69 Year
  Sex: Male

DRUGS (10)
  1. DASATINIB [Suspect]
     Active Substance: DASATINIB
     Indication: Product used for unknown indication
     Dosage: 100MGX1
     Dates: start: 20230103
  2. DASATINIB [Suspect]
     Active Substance: DASATINIB
     Dosage: 100MGX1
     Dates: start: 20230207
  3. DASATINIB [Suspect]
     Active Substance: DASATINIB
     Dosage: UNK
  4. IMATINIB [Suspect]
     Active Substance: IMATINIB
     Indication: Product used for unknown indication
     Dosage: UNK
  5. IMATINIB [Suspect]
     Active Substance: IMATINIB
     Dosage: UNK
  6. BOSUTINIB [Suspect]
     Active Substance: BOSUTINIB
     Indication: Product used for unknown indication
     Dosage: UNK
  7. BOSUTINIB [Suspect]
     Active Substance: BOSUTINIB
     Dosage: UNK
  8. ASPIRIN\MAGNESIUM OXIDE [Concomitant]
     Active Substance: ASPIRIN\MAGNESIUM OXIDE
     Indication: Product used for unknown indication
  9. LIPITOR [Concomitant]
     Active Substance: ATORVASTATIN CALCIUM
     Indication: Product used for unknown indication
  10. REMERON [Concomitant]
     Active Substance: MIRTAZAPINE
     Indication: Product used for unknown indication

REACTIONS (7)
  - Chronic kidney disease [Unknown]
  - Cough [Unknown]
  - Fatigue [Unknown]
  - Myalgia [Unknown]
  - Constipation [Unknown]
  - Dyspnoea [Unknown]
  - Therapy cessation [Unknown]
